FAERS Safety Report 5305751-2 (Version None)
Quarter: 2007Q2

REPORT INFORMATION
  Report Type: 
  Country: None (occurrence: None)
  Receive Date: 20070416
  Receipt Date: 20070410
  Transmission Date: 20071010
  Serious: Yes (Life-Threatening, Hospitalization, Other)
  Sender: FDA-Public Use
  Company Number: 2006SP008615

PATIENT
  Age: 55 Year
  Sex: Male
  Weight: 89 kg

DRUGS (5)
  1. INTRON A [Suspect]
     Indication: MALIGNANT MELANOMA
     Dosage: 41 MIU;QD;IV; 27 MIU;QD;IV
     Route: 042
     Dates: start: 20061010, end: 20061011
  2. INTRON A [Suspect]
     Indication: MALIGNANT MELANOMA
     Dosage: 41 MIU;QD;IV; 27 MIU;QD;IV
     Route: 042
     Dates: start: 20061012, end: 20061012
  3. INDAMOL (CON.) [Concomitant]
  4. TRAZADONE (CON.) [Concomitant]
  5. HYDROMORPHINE (CON.) [Concomitant]

REACTIONS (8)
  - CHILLS [None]
  - DYSPNOEA [None]
  - HEADACHE [None]
  - MALAISE [None]
  - OEDEMA [None]
  - OEDEMA PERIPHERAL [None]
  - SWELLING FACE [None]
  - SWOLLEN TONGUE [None]
